FAERS Safety Report 12405752 (Version 1)
Quarter: 2016Q2

REPORT INFORMATION
  Report Type: Spontaneous
  Country: US (occurrence: None)
  Receive Date: 20160525
  Receipt Date: 20160525
  Transmission Date: 20160815
  Serious: Yes (Hospitalization)
  Sender: FDA-Public Use
  Company Number: None

PATIENT
  Age: 50 Year
  Sex: Male
  Weight: 75.4 kg

DRUGS (1)
  1. QUETIAPINE. [Suspect]
     Active Substance: QUETIAPINE
     Dosage: 300 MG OTHER PO
     Route: 048
     Dates: start: 20160111, end: 20160115

REACTIONS (3)
  - Abdominal pain upper [None]
  - Hepatitis viral [None]
  - Drug-induced liver injury [None]

NARRATIVE: CASE EVENT DATE: 20160115
